FAERS Safety Report 5989296-2 (Version None)
Quarter: 2008Q4

REPORT INFORMATION
  Report Type: 
  Country: None (occurrence: None)
  Receive Date: 20081210
  Receipt Date: 20081205
  Transmission Date: 20090506
  Serious: Yes (Other)
  Sender: FDA-Public Use
  Company Number: FR-BRISTOL-MYERS SQUIBB COMPANY-14408306

PATIENT
  Age: 37 Year
  Sex: Female

DRUGS (2)
  1. ABILIFY [Suspect]
     Indication: SCHIZOPHRENIA
     Dosage: THERAPY ONGOING
     Route: 048
     Dates: start: 20080901
  2. DEPAKOTE [Suspect]
     Indication: SCHIZOPHRENIA
     Dosage: THERAPY ONGOING
     Route: 048
     Dates: start: 20071001

REACTIONS (2)
  - ABORTION SPONTANEOUS [None]
  - PREGNANCY [None]
